FAERS Safety Report 8172040-0 (Version None)
Quarter: 2012Q1

REPORT INFORMATION
  Report Type: 
  Country: None (occurrence: None)
  Receive Date: 20120228
  Receipt Date: 20120222
  Transmission Date: 20120608
  Serious: Yes (Other)
  Sender: FDA-Public Use
  Company Number: JP-B.I. PHARMACEUTICALS,INC./RIDGEFIELD-2012-BP-02466NB

PATIENT
  Age: 78 Year
  Sex: Male

DRUGS (6)
  1. LANIRAPID [Concomitant]
     Dosage: 0.05 MG
     Route: 065
  2. BUFFERIN [Concomitant]
     Route: 065
  3. DILTIAZEM HCL [Concomitant]
     Dosage: 200 MG
     Route: 065
  4. LASIX [Concomitant]
     Dosage: 20 MG
     Route: 065
  5. FAMOTIDINE [Concomitant]
     Dosage: 20 MG
     Route: 065
  6. PRADAXA [Suspect]
     Indication: ATRIAL FIBRILLATION
     Dosage: 220 MG
     Route: 048
     Dates: start: 20110803, end: 20120111

REACTIONS (1)
  - INTERSTITIAL LUNG DISEASE [None]
